FAERS Safety Report 6785533-5 (Version None)
Quarter: 2010Q2

REPORT INFORMATION
  Report Type: 
  Country: None (occurrence: None)
  Receive Date: 20100621
  Receipt Date: 20100621
  Transmission Date: 20101027
  Serious: Yes (Hospitalization)
  Sender: FDA-Public Use
  Company Number: None

PATIENT
  Age: 82 Year
  Sex: Female
  Weight: 66.2 kg

DRUGS (7)
  1. ASA [Suspect]
     Dosage: 81 MG DAILY PO ; CHRONIC
     Route: 048
  2. PIROXICAM [Suspect]
     Indication: OSTEOARTHRITIS
     Dosage: 20MG DAILY PO , CHRONIC
     Route: 048
  3. PIROXICAM [Suspect]
     Indication: PAIN
     Dosage: 20MG DAILY PO , CHRONIC
     Route: 048
  4. LEVOXYL [Concomitant]
  5. DARVOCET [Concomitant]
  6. SIMVASTIN [Concomitant]
  7. IBUPROFEN [Suspect]

REACTIONS (7)
  - AGITATION [None]
  - DELIRIUM [None]
  - GASTROINTESTINAL HAEMORRHAGE [None]
  - HAEMATOCRIT DECREASED [None]
  - HAEMOGLOBIN DECREASED [None]
  - OESOPHAGITIS [None]
  - SYNCOPE [None]
